FAERS Safety Report 14614843 (Version 1)
Quarter: 2018Q1

REPORT INFORMATION
  Report Type: Spontaneous
  Country: US (occurrence: US)
  Receive Date: 20180308
  Receipt Date: 20180308
  Transmission Date: 20180509
  Serious: No
  Sender: FDA-Public Use
  Company Number: US-TEVA-2018-US-859022

PATIENT
  Sex: Female

DRUGS (1)
  1. EZETIMIBE TEVA [Suspect]
     Active Substance: EZETIMIBE
     Route: 065

REACTIONS (3)
  - Halo vision [None]
  - Headache [Unknown]
  - Photopsia [Unknown]
